FAERS Safety Report 25232415 (Version 2)
Quarter: 2025Q2

REPORT INFORMATION
  Report Type: Spontaneous
  Country: US (occurrence: US)
  Receive Date: 20250423
  Receipt Date: 20250510
  Transmission Date: 20250717
  Serious: No
  Sender: SANOFI AVENTIS
  Company Number: US-SANOFI-02495083

PATIENT
  Age: 7 Year
  Sex: Male

DRUGS (1)
  1. DUPIXENT [Suspect]
     Active Substance: DUPILUMAB
     Indication: Eczema
     Dosage: 200 MG, QM
     Route: 065
     Dates: start: 2024

REACTIONS (6)
  - Body tinea [Unknown]
  - Erythema [Unknown]
  - Acne [Unknown]
  - Skin disorder [Unknown]
  - Rash [Unknown]
  - Drug ineffective [Unknown]
